FAERS Safety Report 5429538-5 (Version None)
Quarter: 2007Q3

REPORT INFORMATION
  Report Type: 
  Country: None (occurrence: None)
  Receive Date: 20070829
  Receipt Date: 20070409
  Transmission Date: 20080115
  Serious: No
  Sender: FDA-Public Use
  Company Number: A0647040A

PATIENT
  Sex: Female

DRUGS (1)
  1. BECONASE AQUEOUS [Suspect]
     Indication: RHINITIS
     Dosage: 4SPR TWICE PER DAY
     Route: 045
     Dates: start: 20020101, end: 20020101

REACTIONS (5)
  - CONDITION AGGRAVATED [None]
  - DRUG INEFFECTIVE [None]
  - NASAL CONGESTION [None]
  - NASAL POLYPS [None]
  - RHINITIS [None]
